FAERS Safety Report 5095213-2 (Version None)
Quarter: 2006Q3

REPORT INFORMATION
  Report Type: 
  Country: None (occurrence: None)
  Receive Date: 20060901
  Receipt Date: 20060828
  Transmission Date: 20061208
  Serious: Yes (Other)
  Sender: FDA-Public Use
  Company Number: CN-GLAXOSMITHKLINE-B0436505A

PATIENT
  Age: 24 Year
  Sex: Male

DRUGS (5)
  1. HEPTODIN [Suspect]
     Dosage: 100MG PER DAY
     Route: 048
     Dates: start: 20060723
  2. GLUTATHIONE [Concomitant]
  3. ALBUMIN [Concomitant]
  4. DIAMMONIUM GLYCYRRHIZINATE [Concomitant]
  5. AMINO ACIDS [Concomitant]

REACTIONS (2)
  - ANAEMIA [None]
  - LEUKOPENIA [None]
